FAERS Safety Report 18637728 (Version 1)
Quarter: 2020Q4

REPORT INFORMATION
  Report Type: Report from Study
  Country: None (occurrence: IT)
  Receive Date: 20201218
  Receipt Date: 20201218
  Transmission Date: 20210114
  Serious: Yes (Hospitalization, Other)
  Sender: FDA-Public Use
  Company Number: IT-ABBVIE-20K-083-3234236-00

PATIENT
  Age: 13 Year
  Sex: Female
  Weight: 46 kg

DRUGS (5)
  1. HUMIRA [Suspect]
     Active Substance: ADALIMUMAB
     Indication: CROHN^S DISEASE
     Route: 058
     Dates: start: 20160519, end: 20180331
  2. ENTYVIO [Concomitant]
     Active Substance: VEDOLIZUMAB
     Indication: DRUG INTOLERANCE
  3. FLIXABI [Concomitant]
     Active Substance: INFLIXIMAB
     Indication: PRODUCT USED FOR UNKNOWN INDICATION
  4. ENTYVIO [Concomitant]
     Active Substance: VEDOLIZUMAB
     Indication: PRODUCT USED FOR UNKNOWN INDICATION
     Route: 042
     Dates: start: 20180705, end: 20181130
  5. FLIXABI [Concomitant]
     Active Substance: INFLIXIMAB
     Indication: PRODUCT USED FOR UNKNOWN INDICATION
     Route: 042
     Dates: start: 20191122

REACTIONS (2)
  - Abscess intestinal [Recovered/Resolved]
  - Fistula of small intestine [Recovered/Resolved]

NARRATIVE: CASE EVENT DATE: 20181206
